FAERS Safety Report 9365576 (Version 1)
Quarter: 2013Q2

REPORT INFORMATION
  Report Type: Spontaneous
  Country: US (occurrence: None)
  Receive Date: 20130624
  Receipt Date: 20130624
  Transmission Date: 20140414
  Serious: Yes (Hospitalization)
  Sender: FDA-Public Use
  Company Number: None

PATIENT
  Age: 77 Year
  Sex: Male
  Weight: 128 kg

DRUGS (1)
  1. PRADAXA [Suspect]
     Indication: ATRIAL FIBRILLATION
     Dosage: 150MG BID ORAL?04/09/2013 PRIOR TO ADMISSION
     Route: 048
     Dates: start: 20130409

REACTIONS (5)
  - Anaemia [None]
  - Telangiectasia [None]
  - Haemorrhage [None]
  - International normalised ratio increased [None]
  - Blood creatinine increased [None]
